FAERS Safety Report 10338031 (Version 2)
Quarter: 2014Q3

REPORT INFORMATION
  Report Type: Spontaneous
  Country: SI (occurrence: SI)
  Receive Date: 20140724
  Receipt Date: 20140807
  Transmission Date: 20150326
  Serious: Yes (Hospitalization)
  Sender: FDA-Public Use
  Company Number: SI-JNJFOC-20140708510

PATIENT
  Age: 49 Year
  Sex: Female

DRUGS (6)
  1. KYTRIL [Concomitant]
     Active Substance: GRANISETRON HYDROCHLORIDE
     Route: 065
  2. CAELYX [Suspect]
     Active Substance: DOXORUBICIN HYDROCHLORIDE
     Indication: OVARIAN CANCER
     Route: 042
     Dates: start: 20140306, end: 20140610
  3. CARBOPLATIN. [Suspect]
     Active Substance: CARBOPLATIN
     Indication: OVARIAN CANCER
     Route: 042
  4. LAMICTAL [Concomitant]
     Active Substance: LAMOTRIGINE
     Route: 065
  5. CAELYX [Suspect]
     Active Substance: DOXORUBICIN HYDROCHLORIDE
     Indication: OVARIAN CANCER
     Route: 042
     Dates: start: 20140630
  6. AVASTIN [Concomitant]
     Active Substance: BEVACIZUMAB
     Route: 065

REACTIONS (6)
  - Burning sensation [Not Recovered/Not Resolved]
  - Skin fissures [Unknown]
  - Tongue coated [Recovered/Resolved]
  - Stomatitis [Recovered/Resolved]
  - Palmar-plantar erythrodysaesthesia syndrome [Recovered/Resolved]
  - Dysphagia [Recovered/Resolved]

NARRATIVE: CASE EVENT DATE: 201407
